FAERS Safety Report 19257247 (Version 1)
Quarter: 2021Q2

REPORT INFORMATION
  Report Type: Spontaneous
  Country: US (occurrence: US)
  Receive Date: 20210513
  Receipt Date: 20210513
  Transmission Date: 20210717
  Serious: Yes (Other)
  Sender: FDA-Public Use
  Company Number: None

PATIENT
  Age: 43 Year
  Sex: Male
  Weight: 83.92 kg

DRUGS (3)
  1. CURCUMIN [Concomitant]
     Active Substance: CURCUMIN
  2. VITAMIN D [Concomitant]
     Active Substance: VITAMIN D NOS
  3. NORTRIPTYLINE [Suspect]
     Active Substance: NORTRIPTYLINE

REACTIONS (1)
  - Therapeutic response unexpected [None]

NARRATIVE: CASE EVENT DATE: 20210505
